FAERS Safety Report 6578215-6 (Version None)
Quarter: 2010Q1

REPORT INFORMATION
  Report Type: 
  Country: None (occurrence: None)
  Receive Date: 20100211
  Receipt Date: 20100209
  Transmission Date: 20100710
  Serious: Yes (Other)
  Sender: FDA-Public Use
  Company Number: A0545688A

PATIENT
  Age: 62 Year
  Sex: Female
  Weight: 95.5 kg

DRUGS (5)
  1. AVANDIA [Suspect]
     Dosage: 4MG TWICE PER DAY
     Route: 048
     Dates: start: 20020101, end: 20041122
  2. ZOCOR [Concomitant]
  3. HUMULIN 70/30 [Concomitant]
  4. LEVOXYL [Concomitant]
  5. XANAX [Concomitant]

REACTIONS (11)
  - CARDIAC FAILURE CONGESTIVE [None]
  - DYSPNOEA [None]
  - FLUID RETENTION [None]
  - HEART RATE INCREASED [None]
  - OEDEMA [None]
  - PAIN IN EXTREMITY [None]
  - PULMONARY FIBROSIS [None]
  - SKIN CHAPPED [None]
  - SKIN TIGHTNESS [None]
  - VARICOSE VEIN [None]
  - WEIGHT INCREASED [None]
